FAERS Safety Report 8461527-9 (Version None)
Quarter: 2012Q2

REPORT INFORMATION
  Report Type: 
  Country: None (occurrence: None)
  Receive Date: 20120625
  Receipt Date: 20120611
  Transmission Date: 20120825
  Serious: Yes (Hospitalization)
  Sender: FDA-Public Use
  Company Number: FR-JNJFOC-20120609909

PATIENT
  Age: 48 Year
  Sex: Female

DRUGS (10)
  1. IBUPROFEN [Suspect]
     Indication: TOOTHACHE
     Route: 048
     Dates: start: 20120326, end: 20120401
  2. BUDESONIDE W/FORMOTEROL FUMARATE [Suspect]
     Indication: ASTHMA
     Route: 055
     Dates: start: 20090101
  3. ACETAMINOPHEN AND TRAMADOL HCL [Suspect]
     Indication: TOOTHACHE
     Dosage: 1DF,3/DAY
     Route: 048
     Dates: start: 20120326, end: 20120401
  4. DESLORATADINE [Concomitant]
     Indication: PRODUCT USED FOR UNKNOWN INDICATION
     Route: 065
  5. HUMALOG [Concomitant]
     Indication: PRODUCT USED FOR UNKNOWN INDICATION
     Route: 065
  6. SINGULAIR [Suspect]
     Indication: ASTHMA
     Route: 065
     Dates: start: 20120326
  7. PRAZEPAM [Concomitant]
     Indication: PRODUCT USED FOR UNKNOWN INDICATION
     Route: 065
  8. ALBUTEROL [Suspect]
     Indication: ASTHMA
     Route: 055
     Dates: start: 20080101, end: 20120401
  9. LEVOTHYROXINE SODIUM [Concomitant]
     Indication: PRODUCT USED FOR UNKNOWN INDICATION
     Route: 065
  10. GUETHURAL [Concomitant]
     Indication: PRODUCT USED FOR UNKNOWN INDICATION
     Route: 065

REACTIONS (1)
  - MENINGORRHAGIA [None]
